FAERS Safety Report 6051794-3 (Version None)
Quarter: 2009Q1

REPORT INFORMATION
  Report Type: 
  Country: None (occurrence: None)
  Receive Date: 20090126
  Receipt Date: 20090119
  Transmission Date: 20090719
  Serious: Yes (Other)
  Sender: FDA-Public Use
  Company Number: PHHY2009MX02340

PATIENT
  Age: 59 Year
  Sex: Male

DRUGS (4)
  1. RASILEZ [Suspect]
     Indication: HYPERTENSION
     Dosage: 150 MG, QD
     Route: 048
  2. MICARDIS [Concomitant]
  3. ALLOPURINOL [Concomitant]
  4. CHLORTHALIDONE [Concomitant]

REACTIONS (4)
  - CONSTIPATION [None]
  - EYE HAEMORRHAGE [None]
  - EYE OPERATION [None]
  - OEDEMA [None]
